FAERS Safety Report 7456082-6 (Version None)
Quarter: 2011Q2

REPORT INFORMATION
  Report Type: 
  Country: None (occurrence: None)
  Receive Date: 20110503
  Receipt Date: 20110428
  Transmission Date: 20111010
  Serious: No
  Sender: FDA-Public Use
  Company Number: US-PFIZER INC-2011091949

PATIENT
  Sex: Male

DRUGS (2)
  1. VOLTAREN [Suspect]
     Indication: NEURALGIA
     Dosage: 2 G, 2X/DAY, 1-2 TIMES PER DAY
     Route: 061
     Dates: start: 20101001
  2. LYRICA [Suspect]
     Indication: NEURALGIA
     Dosage: 2 G, 2X/DAY, 1-2 TIMES
     Dates: start: 20101101

REACTIONS (1)
  - PAIN [None]
